FAERS Safety Report 5817000-7 (Version None)
Quarter: 2008Q3

REPORT INFORMATION
  Report Type: 
  Country: None (occurrence: None)
  Receive Date: 20080722
  Receipt Date: 20080715
  Transmission Date: 20090109
  Serious: Yes (Hospitalization)
  Sender: FDA-Public Use
  Company Number: US-BAYER-200823613NA

PATIENT
  Age: 54 Year
  Sex: Female

DRUGS (2)
  1. ULTRAVIST 300 [Suspect]
     Indication: COMPUTERISED TOMOGRAM THORAX
     Route: 042
     Dates: start: 20080515, end: 20080515
  2. EC ASA (ENTERIC COATED ACETYLSALICYLIC ACID) [Concomitant]

REACTIONS (1)
  - CONTRAST MEDIA ALLERGY [None]
